FAERS Safety Report 9411736 (Version 1)
Quarter: 2013Q3

REPORT INFORMATION
  Report Type: Spontaneous
  Country: BR (occurrence: BR)
  Receive Date: 20130722
  Receipt Date: 20130722
  Transmission Date: 20140515
  Serious: Yes (Other)
  Sender: FDA-Public Use
  Company Number: BR-AMGEN-BRASP2013050308

PATIENT
  Age: 30 Year
  Sex: Male
  Weight: 82 kg

DRUGS (2)
  1. ENBREL [Suspect]
     Indication: ANKYLOSING SPONDYLITIS
     Dosage: UNK
     Route: 065
     Dates: start: 2006, end: 2011
  2. ENBREL [Suspect]
     Dosage: 50 MG, 1X/WEEK
     Route: 058
     Dates: start: 2011, end: 2012

REACTIONS (2)
  - Immunodeficiency [Unknown]
  - Pulmonary mass [Unknown]
